FAERS Safety Report 9485664 (Version 1)
Quarter: 2013Q3

REPORT INFORMATION
  Report Type: Spontaneous
  Country: US (occurrence: US)
  Receive Date: 20130829
  Receipt Date: 20130829
  Transmission Date: 20140515
  Serious: No
  Sender: FDA-Public Use
  Company Number: US-B.I. PHARMACEUTICALS,INC./RIDGEFIELD-2013-BI-26423BP

PATIENT
  Sex: Female

DRUGS (4)
  1. SPIRIVA [Suspect]
     Indication: CHRONIC OBSTRUCTIVE PULMONARY DISEASE
     Dosage: 18 MCG
     Route: 055
     Dates: start: 2010
  2. SPIRIVA [Suspect]
     Dosage: 18 MCG
     Route: 055
     Dates: start: 201212
  3. SPIRIVA [Suspect]
     Dosage: 18 MCG
     Route: 055
     Dates: start: 201201
  4. XOPENEX [Concomitant]
     Route: 055

REACTIONS (6)
  - Dizziness [Recovered/Resolved]
  - Nasal congestion [Unknown]
  - Palpitations [Unknown]
  - Insomnia [Recovered/Resolved]
  - Gait disturbance [Recovered/Resolved]
  - Cardiac flutter [Recovered/Resolved]
